FAERS Safety Report 9510048 (Version 1)
Quarter: 2013Q3

REPORT INFORMATION
  Report Type: Spontaneous
  Country: US (occurrence: US)
  Receive Date: 20130909
  Receipt Date: 20130909
  Transmission Date: 20140515
  Serious: Yes (Hospitalization, Other)
  Sender: FDA-Public Use
  Company Number: US-BRISTOL-MYERS SQUIBB COMPANY-17138991

PATIENT
  Age: 18 Year
  Sex: Male

DRUGS (3)
  1. ABILIFY TABS 20 MG [Suspect]
     Dates: start: 201006
  2. TRAZODONE HCL [Suspect]
  3. MINOCYCLINE [Concomitant]

REACTIONS (2)
  - Bradycardia [Unknown]
  - Suicidal ideation [Unknown]
